FAERS Safety Report 4441948-1 (Version None)
Quarter: 2004Q3

REPORT INFORMATION
  Report Type: 
  Country: None (occurrence: None)
  Receive Date: 20040903
  Receipt Date: 20040603
  Transmission Date: 20050211
  Serious: Yes (Other)
  Sender: FDA-Public Use
  Company Number: 2004UW11617

PATIENT
  Age: 79 Year
  Sex: Female
  Weight: 52.1637 kg

DRUGS (5)
  1. CRESTOR [Suspect]
     Indication: BLOOD CHOLESTEROL INCREASED
     Dosage: 10 MG PO
     Route: 048
     Dates: start: 20040501
  2. DIGOXIN [Concomitant]
  3. PREDNISONE [Concomitant]
  4. ASPIRIN [Concomitant]
  5. FOLIC ACID [Concomitant]

REACTIONS (1)
  - ALOPECIA [None]
